FAERS Safety Report 10088822 (Version 1)
Quarter: 2014Q2

REPORT INFORMATION
  Report Type: Spontaneous
  Country: GB (occurrence: GB)
  Receive Date: 20140421
  Receipt Date: 20140421
  Transmission Date: 20141212
  Serious: Yes (Hospitalization)
  Sender: FDA-Public Use
  Company Number: GB-TEVA-474234ISR

PATIENT
  Age: 58 Year
  Sex: Male
  Weight: 74 kg

DRUGS (6)
  1. WARFARIN [Suspect]
     Indication: NEPHROTIC SYNDROME
     Dosage: ACCORDING TO INR.
     Route: 048
     Dates: start: 20111128, end: 20140228
  2. PREDNISOLONE [Suspect]
     Indication: NEPHROTIC SYNDROME
     Dosage: 60 MILLIGRAM DAILY;
     Route: 048
     Dates: start: 20140227, end: 20140228
  3. METHYLPREDNISOLONE [Suspect]
     Indication: NEPHROTIC SYNDROME
     Route: 042
     Dates: start: 20140224, end: 20140226
  4. DOXAZOSIN [Concomitant]
  5. FUROSEMIDE [Concomitant]
  6. RAMIPRIL [Concomitant]

REACTIONS (2)
  - International normalised ratio increased [Recovering/Resolving]
  - Haemorrhage [Recovered/Resolved]
